FAERS Safety Report 11075978 (Version 1)
Quarter: 2015Q2

REPORT INFORMATION
  Report Type: Spontaneous
  Country: DE (occurrence: DE)
  Receive Date: 20150429
  Receipt Date: 20150429
  Transmission Date: 20150821
  Serious: Yes (Death, Life-Threatening, Hospitalization)
  Sender: FDA-Public Use
  Company Number: DE-ELI_LILLY_AND_COMPANY-DE201504007886

PATIENT
  Sex: Male

DRUGS (10)
  1. ALIMTA [Suspect]
     Active Substance: PEMETREXED DISODIUM
     Indication: LUNG NEOPLASM MALIGNANT
     Dosage: UNK
     Route: 042
     Dates: start: 20140303
  2. METOPROL XL [Concomitant]
     Dosage: 47.5 MG, UNKNOWN
  3. NOVAMINSULFON [Concomitant]
     Active Substance: METAMIZOLE
  4. MOVICOL [Concomitant]
     Active Substance: POLYETHYLENE GLYCOL 3350\POTASSIUM CHLORIDE\SODIUM BICARBONATE\SODIUM CHLORIDE
  5. OXYCODON [Concomitant]
     Active Substance: OXYCODONE
     Dosage: 10 MG, UNKNOWN
  6. LYRICA [Concomitant]
     Active Substance: PREGABALIN
  7. XARELTO [Concomitant]
     Active Substance: RIVAROXABAN
     Dosage: 20 MG, UNKNOWN
  8. ALIMTA [Suspect]
     Active Substance: PEMETREXED DISODIUM
     Dosage: UNK
     Route: 042
     Dates: start: 20140303
  9. TARGIN [Concomitant]
     Active Substance: NALOXONE HYDROCHLORIDE\OXYCODONE HYDROCHLORIDE
  10. PANTOPRAZOLE SODIUM. [Concomitant]
     Active Substance: PANTOPRAZOLE SODIUM
     Dosage: 20 MG, UNKNOWN

REACTIONS (2)
  - Bone marrow failure [Fatal]
  - Sepsis [Fatal]
